FAERS Safety Report 7341479-5 (Version None)
Quarter: 2011Q1

REPORT INFORMATION
  Report Type: 
  Country: None (occurrence: None)
  Receive Date: 20110309
  Receipt Date: 20101103
  Transmission Date: 20110831
  Serious: Yes (Life-Threatening)
  Sender: FDA-Public Use
  Company Number: US-ROCHE-723464

PATIENT
  Sex: Male
  Weight: 70.3 kg

DRUGS (28)
  1. TOCILIZUMAB [Suspect]
     Route: 042
     Dates: start: 20090311
  2. PREDNISONE TAB [Concomitant]
     Dosage: FREQ: PRN
     Route: 048
     Dates: start: 20090207
  3. PREDNISONE TAB [Concomitant]
     Route: 048
  4. LUTEIN [Concomitant]
     Dates: start: 20070317
  5. TOCILIZUMAB [Suspect]
     Route: 042
     Dates: start: 20100803
  6. TYLENOL [Concomitant]
     Dates: start: 20070926
  7. TOCILIZUMAB [Suspect]
     Indication: RHEUMATOID ARTHRITIS
     Route: 042
     Dates: start: 20060927
  8. TOCILIZUMAB [Suspect]
     Route: 042
     Dates: start: 20100602
  9. PLACEBO [Suspect]
     Indication: RHEUMATOID ARTHRITIS
     Dosage: PREVIOUSLY ENROLLED IN WA18063 AND RECEIVED INTRAVENOUS PLACEBO.
     Route: 042
  10. NAPROXEN [Concomitant]
     Dosage: DOSE: 500 MG BID/QD
     Dates: start: 20100302
  11. TOCILIZUMAB [Suspect]
     Route: 042
     Dates: start: 20081219
  12. SALSALATE [Concomitant]
     Dates: start: 19980101, end: 20090409
  13. RANITIDINE [Concomitant]
     Dates: start: 20070502
  14. TOCILIZUMAB [Suspect]
     Route: 042
     Dates: start: 20090213
  15. TOCILIZUMAB [Suspect]
     Route: 042
     Dates: start: 20090528
  16. TOCILIZUMAB [Suspect]
     Route: 042
     Dates: start: 20100505
  17. MULTIPLE VITS [Concomitant]
     Dosage: FREQ: QD
     Dates: start: 20070101
  18. FOLIC ACID [Concomitant]
     Dates: start: 20070316
  19. TOCILIZUMAB [Suspect]
     Dosage: FORM: IV SOLUTION,PERMANATLY DISCONTINUED
     Route: 042
     Dates: end: 20100823
  20. PREDNISONE TAB [Concomitant]
     Route: 048
     Dates: start: 20090913
  21. ANTIOXIDANT [Concomitant]
     Dates: start: 20000101
  22. TOCILIZUMAB [Suspect]
     Route: 042
     Dates: start: 20090115
  23. TOCILIZUMAB [Suspect]
     Route: 042
     Dates: start: 20100629
  24. PREDNISONE TAB [Concomitant]
     Route: 048
     Dates: start: 20090328, end: 20090428
  25. TOCILIZUMAB [Suspect]
     Route: 042
     Dates: start: 20090409
  26. CALCIUM/VITAMIN D [Concomitant]
     Dates: start: 20050702
  27. METHOTREXATE [Concomitant]
     Route: 030
     Dates: start: 20081111, end: 20090409
  28. METHOTREXATE [Concomitant]
     Route: 030
     Dates: start: 20100120

REACTIONS (1)
  - PROSTATE CANCER STAGE II [None]
